FAERS Safety Report 11688489 (Version 3)
Quarter: 2015Q4

REPORT INFORMATION
  Report Type: Report from Study
  Country: US (occurrence: US)
  Receive Date: 20151101
  Receipt Date: 20151120
  Transmission Date: 20160304
  Serious: No
  Sender: FDA-Public Use
  Company Number: US-AMGEN-USASL2015111176

PATIENT
  Age: 69 Year
  Sex: Female

DRUGS (1)
  1. ENBREL [Suspect]
     Active Substance: ETANERCEPT
     Indication: RHEUMATOID ARTHRITIS
     Dosage: 50 MG, QWK
     Route: 065
     Dates: start: 201411

REACTIONS (6)
  - Erythema [Unknown]
  - Injection site bruising [Recovered/Resolved]
  - Device issue [Unknown]
  - Injection site pain [Unknown]
  - Device difficult to use [Unknown]
  - Discomfort [Unknown]

NARRATIVE: CASE EVENT DATE: 201510
